FAERS Safety Report 8546174-2 (Version None)
Quarter: 2012Q3

REPORT INFORMATION
  Report Type: 
  Country: None (occurrence: None)
  Receive Date: 20120727
  Receipt Date: 20120719
  Transmission Date: 20120928
  Serious: Yes (Hospitalization, Other)
  Sender: FDA-Public Use
  Company Number: DE-ASTRAZENECA-2012SE51250

PATIENT
  Age: 60 Year
  Sex: Male

DRUGS (4)
  1. ATACAND [Suspect]
     Indication: HYPERTENSION
     Route: 048
  2. METOPROLOL TARTRATE [Concomitant]
     Route: 048
  3. METOPROLOL TARTRATE [Concomitant]
     Indication: HYPERTENSION
     Route: 048
  4. DIAZEPAM [Concomitant]
     Route: 048
     Dates: start: 20020101

REACTIONS (3)
  - HYPERTENSION [None]
  - DIZZINESS [None]
  - DRUG INEFFECTIVE [None]
